FAERS Safety Report 11793150 (Version 4)
Quarter: 2018Q3

REPORT INFORMATION
  Report Type: Report from Study
  Country: EC (occurrence: EC)
  Receive Date: 20151202
  Receipt Date: 20180830
  Transmission Date: 20181010
  Serious: Yes (Other)
  Sender: FDA-Public Use
  Company Number: PHHY2015EC156624

PATIENT
  Age: 52 Year
  Sex: Male

DRUGS (2)
  1. TASIGNA [Suspect]
     Active Substance: NILOTINIB
     Dosage: 400 MG, BID (4 DF DAILY OF 200 MG)
     Route: 048
     Dates: start: 20150228
  2. TASIGNA [Suspect]
     Active Substance: NILOTINIB
     Indication: CHRONIC MYELOID LEUKAEMIA
     Dosage: 200 MG, BID
     Route: 048
     Dates: start: 20140909, end: 20150227

REACTIONS (4)
  - Anthrax [Not Recovered/Not Resolved]
  - Decreased immune responsiveness [Unknown]
  - Nasal discomfort [Unknown]
  - Cutaneous anthrax [Recovered/Resolved]

NARRATIVE: CASE EVENT DATE: 20151123
